FAERS Safety Report 18889722 (Version 1)
Quarter: 2021Q1

REPORT INFORMATION
  Report Type: Spontaneous
  Country: US (occurrence: US)
  Receive Date: 20210213
  Receipt Date: 20210213
  Transmission Date: 20210420
  Serious: No
  Sender: FDA-Public Use
  Company Number: US-TEVA-2021-US-1876747

PATIENT
  Age: 22 Year
  Sex: Female

DRUGS (3)
  1. AMPHETAMINE W/DEXTROAMPHETAMINE [Suspect]
     Active Substance: AMPHETAMINE SULFATE\DEXTROAMPHETAMINE
     Dosage: 30 MILLIGRAM DAILY;
     Route: 065
  2. AMPHETAMINE W/DEXTROAMPHETAMINE [Suspect]
     Active Substance: AMPHETAMINE SULFATE\DEXTROAMPHETAMINE
     Dosage: SHE SPLITS HER TABLETS IN HALF AND TAKES ONE?HALF A TABLET 4 TIMES PER DAY
     Route: 065
  3. AMPHETAMINE W/DEXTROAMPHETAMINE [Suspect]
     Active Substance: AMPHETAMINE SULFATE\DEXTROAMPHETAMINE
     Dosage: 40 MILLIGRAM DAILY;
     Route: 065

REACTIONS (9)
  - Palpitations [Unknown]
  - Thinking abnormal [Not Recovered/Not Resolved]
  - Heart rate abnormal [Unknown]
  - Product quality issue [Unknown]
  - Adverse drug reaction [Unknown]
  - Reading disorder [Not Recovered/Not Resolved]
  - Feeling abnormal [Unknown]
  - Inappropriate schedule of product administration [Unknown]
  - Tremor [Unknown]
